FAERS Safety Report 20011563 (Version 1)
Quarter: 2021Q4

REPORT INFORMATION
  Report Type: Spontaneous
  Country: US (occurrence: US)
  Receive Date: 20211029
  Receipt Date: 20211029
  Transmission Date: 20220303
  Serious: No
  Sender: FDA-Public Use
  Company Number: US-HIKMA PHARMACEUTICALS USA INC.-US-H14001-21-02986

PATIENT
  Sex: Male

DRUGS (1)
  1. AZELASTINE. [Suspect]
     Active Substance: AZELASTINE HYDROCHLORIDE
     Indication: Product used for unknown indication
     Dosage: ONE SPRAY EACH NOSTRIL

REACTIONS (2)
  - Product dose omission issue [Unknown]
  - Accidental exposure to product [Unknown]
